FAERS Safety Report 17348137 (Version 1)
Quarter: 2020Q1

REPORT INFORMATION
  Report Type: Report from Study
  Country: US (occurrence: US)
  Receive Date: 20200129
  Receipt Date: 20200129
  Transmission Date: 20200409
  Serious: No
  Sender: FDA-Public Use
  Company Number: US-EXELIXIS-CABO-19025621

PATIENT
  Sex: Male

DRUGS (26)
  1. LANTUS [Concomitant]
     Active Substance: INSULIN GLARGINE
  2. HUMALOG [Concomitant]
     Active Substance: INSULIN LISPRO
  3. XGEVA [Concomitant]
     Active Substance: DENOSUMAB
  4. NITROQUICK [Concomitant]
     Active Substance: NITROGLYCERIN
  5. MAGNESIUM CHLORIDE. [Concomitant]
     Active Substance: MAGNESIUM CHLORIDE
  6. ZOVIRAX [Concomitant]
     Active Substance: ACYCLOVIR
  7. ALBUTEROL. [Concomitant]
     Active Substance: ALBUTEROL
  8. CARVEDILOL. [Concomitant]
     Active Substance: CARVEDILOL
  9. GABAPENTIN. [Concomitant]
     Active Substance: GABAPENTIN
  10. COMETRIQ [Suspect]
     Active Substance: CABOZANTINIB S-MALATE
     Indication: THYROID CANCER
     Dosage: 20 MG, QD
     Route: 048
     Dates: start: 20180119
  11. KLOR-CON [Concomitant]
     Active Substance: POTASSIUM CHLORIDE
  12. XANAX [Concomitant]
     Active Substance: ALPRAZOLAM
  13. LEVOTHYROXINE SODIUM. [Concomitant]
     Active Substance: LEVOTHYROXINE SODIUM
  14. CALCITRIOL. [Concomitant]
     Active Substance: CALCITRIOL
  15. ALLOPURINOL. [Concomitant]
     Active Substance: ALLOPURINOL
  16. ELIQUIS [Concomitant]
     Active Substance: APIXABAN
  17. KETOCONAZOLE. [Concomitant]
     Active Substance: KETOCONAZOLE
  18. HYDROCODONE BITARTRATE. [Concomitant]
     Active Substance: HYDROCODONE BITARTRATE
  19. COLACE [Concomitant]
     Active Substance: DOCUSATE SODIUM
  20. RANITIDINE HYDROCHLORIDE. [Concomitant]
     Active Substance: RANITIDINE HYDROCHLORIDE
  21. FUROSEMIDE. [Concomitant]
     Active Substance: FUROSEMIDE
  22. CHLORZOXAZONE. [Concomitant]
     Active Substance: CHLORZOXAZONE
  23. DIGOXIN. [Concomitant]
     Active Substance: DIGOXIN
  24. VITAMIN D [Concomitant]
     Active Substance: VITAMIN D NOS
  25. SOTALOL HCL [Concomitant]
     Active Substance: SOTALOL
  26. SIMVASTATIN. [Concomitant]
     Active Substance: SIMVASTATIN

REACTIONS (3)
  - Diarrhoea [Unknown]
  - Rash [Unknown]
  - Cardiac disorder [Unknown]
